FAERS Safety Report 12859621 (Version 1)
Quarter: 2016Q4

REPORT INFORMATION
  Report Type: Spontaneous
  Country: US (occurrence: US)
  Receive Date: 20161018
  Receipt Date: 20161018
  Transmission Date: 20170207
  Serious: No
  Sender: FDA-Public Use
  Company Number: US-ACTELION-A-NJ2016-143616

PATIENT
  Age: 53 Year
  Sex: Male

DRUGS (12)
  1. AMETHIA [Concomitant]
     Active Substance: ETHINYL ESTRADIOL\LEVONORGESTREL
  2. CLOBETASOL [Concomitant]
     Active Substance: CLOBETASOL
  3. NIZORAL [Concomitant]
     Active Substance: KETOCONAZOLE
  4. VALCHLOR [Suspect]
     Active Substance: MECHLORETHAMINE
     Indication: MYCOSIS FUNGOIDES
     Dosage: UNK, QD
     Route: 061
     Dates: start: 20160909, end: 20161001
  5. HYDROCODONE BITARTRATE AND ACETAMINOPHEN [Concomitant]
     Active Substance: ACETAMINOPHEN\HYDROCODONE BITARTRATE
  6. ATORVASTATIN CALCIUM. [Concomitant]
     Active Substance: ATORVASTATIN CALCIUM
  7. OXYCODONE [Concomitant]
     Active Substance: OXYCODONE
  8. HYDROCHLOROTHIAZIDE. [Concomitant]
     Active Substance: HYDROCHLOROTHIAZIDE
  9. AMLODIPINE [Concomitant]
     Active Substance: AMLODIPINE BESYLATE
  10. VALCHLOR [Suspect]
     Active Substance: MECHLORETHAMINE
     Dosage: TWICE A WEEK
     Route: 061
  11. KETOCONAZOLE. [Concomitant]
     Active Substance: KETOCONAZOLE
  12. IBUPROFEN. [Concomitant]
     Active Substance: IBUPROFEN

REACTIONS (4)
  - Skin burning sensation [Recovering/Resolving]
  - Erythema [Recovering/Resolving]
  - Pruritus [Recovering/Resolving]
  - Condition aggravated [Recovering/Resolving]

NARRATIVE: CASE EVENT DATE: 20160930
